FAERS Safety Report 8485904-5 (Version None)
Quarter: 2012Q3

REPORT INFORMATION
  Report Type: 
  Country: None (occurrence: None)
  Receive Date: 20120703
  Receipt Date: 20120620
  Transmission Date: 20120928
  Serious: No
  Sender: FDA-Public Use
  Company Number: US-ASTRAZENECA-2012SE41626

PATIENT
  Age: 77 Year
  Sex: Female
  Weight: 46.7 kg

DRUGS (5)
  1. NIACIN [Concomitant]
  2. ASPIRIN [Concomitant]
  3. CRESTOR [Suspect]
     Indication: BLOOD CHOLESTEROL ABNORMAL
     Route: 048
  4. NIACINAMIDE [Concomitant]
  5. LIPITOR [Concomitant]

REACTIONS (2)
  - BLOOD CHOLESTEROL INCREASED [None]
  - INTENTIONAL DRUG MISUSE [None]
